FAERS Safety Report 24563927 (Version 1)
Quarter: 2024Q4

REPORT INFORMATION
  Report Type: Report from Study
  Country: JP (occurrence: JP)
  Receive Date: 20241030
  Receipt Date: 20241030
  Transmission Date: 20250114
  Serious: Yes (Hospitalization)
  Sender: GILEAD
  Company Number: JP-GILEAD-2024-0692004

PATIENT
  Age: 40 Year
  Sex: Male

DRUGS (5)
  1. EMTRICITABINE\TENOFOVIR [Suspect]
     Active Substance: EMTRICITABINE\TENOFOVIR
     Indication: HIV infection
     Dosage: 1 DOSAGE FORM, QD
     Route: 048
     Dates: start: 20170127
  2. TIVICAY [Concomitant]
     Active Substance: DOLUTEGRAVIR SODIUM
     Indication: HIV infection
     Dosage: 50 MG
     Dates: start: 20151113
  3. HEMLIBRA [Concomitant]
     Active Substance: EMICIZUMAB-KXWH
     Dosage: UNK
  4. ADVATE [Concomitant]
     Active Substance: ANTIHEMOPHILIC FACTOR, HUMAN RECOMBINANT
     Dosage: UNK
  5. NUWIQ [Concomitant]
     Active Substance: ANTIHEMOPHILIC FACTOR, HUMAN RECOMBINANT
     Indication: Prophylaxis
     Dosage: UNK

REACTIONS (1)
  - Dental caries [Recovered/Resolved]

NARRATIVE: CASE EVENT DATE: 20230825
